FAERS Safety Report 20737377 (Version 2)
Quarter: 2022Q2

REPORT INFORMATION
  Report Type: Spontaneous
  Country: US (occurrence: US)
  Receive Date: 20220421
  Receipt Date: 20220426
  Transmission Date: 20220720
  Serious: No
  Sender: FDA-Public Use
  Company Number: US-JNJFOC-20111003215

PATIENT
  Sex: Male

DRUGS (3)
  1. ELMIRON [Suspect]
     Active Substance: PENTOSAN POLYSULFATE SODIUM
     Indication: Bladder disorder
     Dosage: 12:00:00 AM
     Route: 048
     Dates: start: 20110615
  2. GELNIQUE [Suspect]
     Active Substance: OXYBUTYNIN
     Indication: Pollakiuria
     Dosage: 1 APPLICATION EVERY EVENING
     Route: 061
     Dates: start: 20110828
  3. GELNIQUE [Suspect]
     Active Substance: OXYBUTYNIN
     Dosage: 1 APPLICATION EVERY EVENING
     Route: 061
     Dates: start: 201106, end: 20110827

REACTIONS (1)
  - Drug ineffective [Not Recovered/Not Resolved]
